FAERS Safety Report 7358654-6 (Version None)
Quarter: 2011Q1

REPORT INFORMATION
  Report Type: 
  Country: None (occurrence: None)
  Receive Date: 20110317
  Receipt Date: 20110310
  Transmission Date: 20110831
  Serious: Yes (Death, Hospitalization)
  Sender: FDA-Public Use
  Company Number: PT-CELGENEUS-130-20785-11030256

PATIENT
  Sex: Male

DRUGS (20)
  1. ENOXAPARIN [Concomitant]
     Route: 058
     Dates: start: 20110210, end: 20110222
  2. FUROSEMIDE [Concomitant]
     Route: 051
     Dates: start: 20110220, end: 20110222
  3. MELPHALAN HYDROCHLORIDE [Concomitant]
     Route: 048
     Dates: start: 20110218, end: 20110221
  4. ALLOPURINOL [Concomitant]
     Route: 048
     Dates: start: 20110211, end: 20110217
  5. ESOMEPRAZOLE MAGNESIUM [Concomitant]
     Route: 051
     Dates: start: 20110210, end: 20110222
  6. CYANOCOBALAMIN [Concomitant]
     Route: 065
     Dates: start: 20110210, end: 20110222
  7. HYDROCORTISONE [Concomitant]
     Route: 065
  8. METAMIZOLE [Concomitant]
     Route: 065
     Dates: start: 20110218, end: 20110222
  9. NITROGLYCERIN [Concomitant]
     Route: 062
  10. ZOLEDRONIC ACID [Concomitant]
     Route: 065
  11. IPRATROPIUM BROMIDE [Concomitant]
     Route: 055
  12. GLYCEROL [Concomitant]
     Indication: CONSTIPATION
     Route: 065
  13. METOCLOPRAMIDE HCL [Concomitant]
     Route: 051
     Dates: start: 20110218, end: 20110222
  14. THALIDOMIDE [Suspect]
     Indication: MULTIPLE MYELOMA
     Dosage: 100 MILLIGRAM
     Route: 048
     Dates: start: 20110218, end: 20110222
  15. SALBUTAMOL [Concomitant]
     Route: 055
  16. ALLOPURINOL [Concomitant]
     Route: 048
     Dates: start: 20110218, end: 20110222
  17. LACTULOSE [Concomitant]
     Route: 048
     Dates: start: 20110211, end: 20110222
  18. SODIUM CHLORUM [Concomitant]
     Dosage: 5 TABLET
     Route: 065
     Dates: start: 20110211, end: 20110221
  19. ACETAMINOPHEN [Concomitant]
     Route: 051
  20. PREDNISONE TAB [Concomitant]
     Dosage: 5 TABLET
     Route: 048
     Dates: start: 20110218, end: 20110220

REACTIONS (2)
  - GENERAL PHYSICAL HEALTH DETERIORATION [None]
  - DEATH [None]
